FAERS Safety Report 4951715-8 (Version None)
Quarter: 2006Q1

REPORT INFORMATION
  Report Type: 
  Country: None (occurrence: None)
  Receive Date: 20060323
  Receipt Date: 20060307
  Transmission Date: 20060701
  Serious: Yes (Life-Threatening, Hospitalization)
  Sender: FDA-Public Use
  Company Number: CA-GLAXOSMITHKLINE-A0596822A

PATIENT
  Age: 54 Year
  Sex: Male

DRUGS (3)
  1. ADVAIR DISKUS 100/50 [Suspect]
     Indication: ASTHMA
     Dosage: 2PUFF FOUR TIMES PER DAY
     Route: 055
     Dates: start: 20050501, end: 20050601
  2. VENTOLIN [Suspect]
     Indication: ASTHMA
     Dosage: 2PUFF FOUR TIMES PER DAY
     Route: 055
     Dates: start: 20050501, end: 20050601
  3. POLYPHARMACY [Concomitant]

REACTIONS (16)
  - ANGINA PECTORIS [None]
  - ARRHYTHMIA [None]
  - ATRIAL FIBRILLATION [None]
  - BLOOD POTASSIUM INCREASED [None]
  - BLOOD PRESSURE INCREASED [None]
  - CARDIAC DISORDER [None]
  - CHEST PAIN [None]
  - DYSPNOEA [None]
  - FATIGUE [None]
  - FLUSHING [None]
  - HEART RATE INCREASED [None]
  - ORTHOPNOEA [None]
  - PERICARDIAL EFFUSION [None]
  - PERICARDIAL HAEMORRHAGE [None]
  - SYNCOPE [None]
  - VIRAL INFECTION [None]
